FAERS Safety Report 7478969-0 (Version None)
Quarter: 2011Q2

REPORT INFORMATION
  Report Type: 
  Country: None (occurrence: None)
  Receive Date: 20110513
  Receipt Date: 20110505
  Transmission Date: 20111010
  Serious: Yes (Hospitalization)
  Sender: FDA-Public Use
  Company Number: PHHY2011SE38273

PATIENT
  Sex: Male

DRUGS (1)
  1. EXELON [Suspect]
     Indication: DEMENTIA ALZHEIMER'S TYPE
     Dosage: 3 MG, BID
     Route: 048
     Dates: start: 20110308, end: 20110310

REACTIONS (3)
  - OESOPHAGEAL PERFORATION [None]
  - EMPYEMA [None]
  - PNEUMONIA [None]
